FAERS Safety Report 4707841-1 (Version None)
Quarter: 2005Q3

REPORT INFORMATION
  Report Type: 
  Country: None (occurrence: None)
  Receive Date: 20050705
  Receipt Date: 20050705
  Transmission Date: 20060218
  Serious: Yes (Death)
  Sender: FDA-Public Use
  Company Number: None

PATIENT
  Age: 85 Year
  Sex: Male
  Weight: 63.5036 kg

DRUGS (4)
  1. LEXAPRO [Suspect]
     Indication: DEPRESSION
     Dosage: 1 PILL     1 A DAY   ORAL
     Route: 048
     Dates: start: 20030317, end: 20030325
  2. NORVASC [Concomitant]
  3. RELAFEN [Concomitant]
  4. FLOMAX [Concomitant]

REACTIONS (5)
  - ABNORMAL BEHAVIOUR [None]
  - AGITATION [None]
  - COMPLETED SUICIDE [None]
  - INJURY ASPHYXIATION [None]
  - SOCIAL AVOIDANT BEHAVIOUR [None]
